FAERS Safety Report 26070388 (Version 1)
Quarter: 2025Q4

REPORT INFORMATION
  Report Type: Spontaneous
  Country: US (occurrence: US)
  Receive Date: 20251120
  Receipt Date: 20251120
  Transmission Date: 20260118
  Serious: No
  Sender: BAYER HEALTHCARE PHARMACEUTICALS INC.
  Company Number: US-BAYER-2025A153259

PATIENT
  Sex: Female

DRUGS (2)
  1. MIRENA [Suspect]
     Active Substance: LEVONORGESTREL
     Indication: Intrauterine contraception
     Dosage: 20?G/DAY
     Route: 015
     Dates: start: 202206, end: 20250929
  2. MIRENA [Suspect]
     Active Substance: LEVONORGESTREL
     Indication: Menopausal symptoms

REACTIONS (3)
  - Vaginal discharge [None]
  - Insomnia [None]
  - Headache [None]
